FAERS Safety Report 17687783 (Version 1)
Quarter: 2020Q2

REPORT INFORMATION
  Report Type: Spontaneous
  Country: US (occurrence: US)
  Receive Date: 20200417
  Receipt Date: 20200417
  Transmission Date: 20200714
  Serious: Yes (Hospitalization)
  Sender: FDA-Public Use
  Company Number: None

PATIENT
  Age: 52 Year
  Sex: Male
  Weight: 99.2 kg

DRUGS (1)
  1. AZITHROMYCIN (AZITHROMYCIN 250MG CAP) [Suspect]
     Active Substance: AZITHROMYCIN
     Indication: UPPER RESPIRATORY TRACT INFECTION
     Dates: start: 20171101, end: 20171105

REACTIONS (1)
  - Myasthenia gravis crisis [None]

NARRATIVE: CASE EVENT DATE: 20171117
